FAERS Safety Report 19232885 (Version 1)
Quarter: 2021Q2

REPORT INFORMATION
  Report Type: Spontaneous
  Country: US (occurrence: US)
  Receive Date: 20210507
  Receipt Date: 20210507
  Transmission Date: 20210717
  Serious: Yes (Other)
  Sender: FDA-Public Use
  Company Number: US-PFIZER INC-2021508749

PATIENT
  Age: 44 Year
  Sex: Male

DRUGS (1)
  1. ALPRAZOLAM. [Suspect]
     Active Substance: ALPRAZOLAM
     Indication: POST-TRAUMATIC STRESS DISORDER
     Dosage: 9 MG, DAILY (MAXIMUM; TAPERING WAS LESS THAN 1 WEEK

REACTIONS (15)
  - Anxiety [Unknown]
  - Hypervigilance [Unknown]
  - Muscle tightness [Unknown]
  - Sleep disorder [Unknown]
  - Intrusive thoughts [Unknown]
  - Hyperacusis [Unknown]
  - Muscle spasms [Unknown]
  - Drug withdrawal syndrome [Unknown]
  - Nightmare [Unknown]
  - Off label use [Unknown]
  - Tremor [Unknown]
  - Irritability [Unknown]
  - Homicidal ideation [Unknown]
  - Overdose [Unknown]
  - Anger [Unknown]
